FAERS Safety Report 9606027 (Version 1)
Quarter: 2013Q4

REPORT INFORMATION
  Report Type: Spontaneous
  Country: US (occurrence: US)
  Receive Date: 20131008
  Receipt Date: 20131008
  Transmission Date: 20140711
  Serious: No
  Sender: FDA-Public Use
  Company Number: US-AMGEN-USASP2013039018

PATIENT
  Age: 60 Year
  Sex: Female

DRUGS (3)
  1. PROLIA [Suspect]
     Indication: OSTEOPOROSIS POSTMENOPAUSAL
  2. CALCIUM D                          /00944201/ [Concomitant]
  3. FLUOROURACIL                       /00098802/ [Concomitant]
     Route: 061

REACTIONS (1)
  - Paraesthesia [Unknown]
